FAERS Safety Report 9602309 (Version 1)
Quarter: 2013Q4

REPORT INFORMATION
  Report Type: Spontaneous
  Country: US (occurrence: US)
  Receive Date: 20131007
  Receipt Date: 20131007
  Transmission Date: 20140711
  Serious: No
  Sender: FDA-Public Use
  Company Number: US-GLAXOSMITHKLINE-A1027692A

PATIENT
  Age: 67 Year
  Sex: Female

DRUGS (1)
  1. BENLYSTA [Suspect]
     Dosage: 120MG CYCLIC
     Dates: start: 20130506

REACTIONS (4)
  - Intraocular pressure increased [Unknown]
  - Drug hypersensitivity [Unknown]
  - Eye pain [Unknown]
  - Malaise [Unknown]
